FAERS Safety Report 24717179 (Version 1)
Quarter: 2024Q4

REPORT INFORMATION
  Report Type: Spontaneous
  Country: FR (occurrence: FR)
  Receive Date: 20241210
  Receipt Date: 20241210
  Transmission Date: 20250115
  Serious: Yes (Life-Threatening, Other)
  Sender: MYLAN
  Company Number: None

PATIENT
  Age: 43 Year
  Sex: Female
  Weight: 83 kg

DRUGS (4)
  1. ACETAMINOPHEN [Suspect]
     Active Substance: ACETAMINOPHEN
     Indication: Product used for unknown indication
     Dosage: 16 GRAM, 16 TABLETS OF 1G
     Route: 048
     Dates: start: 20241109
  2. ZOPICLONE [Suspect]
     Active Substance: ZOPICLONE
     Indication: Product used for unknown indication
     Dosage: 28 DOSAGE FORM, 28 TABLETS OF 7.5 MG
     Route: 048
     Dates: start: 20241109
  3. MELATONIN [Concomitant]
     Active Substance: MELATONIN
     Dosage: 1.5 MILLIGRAM
     Route: 048
     Dates: start: 20241109
  4. PROGESTERONE [Concomitant]
     Active Substance: PROGESTERONE
     Dosage: 2 DOSAGE FORM
     Route: 048
     Dates: start: 20241109

REACTIONS (3)
  - Coma [Recovered/Resolved]
  - Toxicity to various agents [Recovered/Resolved]
  - Poisoning deliberate [Unknown]

NARRATIVE: CASE EVENT DATE: 20241109
